FAERS Safety Report 9972450 (Version 2)
Quarter: 2014Q1

REPORT INFORMATION
  Report Type: Spontaneous
  Country: US (occurrence: US)
  Receive Date: 20140306
  Receipt Date: 20140306
  Transmission Date: 20141002
  Serious: Yes (Other)
  Sender: FDA-Public Use
  Company Number: US-GE HEALTHCARE MEDICAL DIAGNOSTICS-OSCN-PR-0905S-0249

PATIENT
  Age: 23 Year
  Sex: Male

DRUGS (4)
  1. OMNISCAN [Suspect]
     Indication: PRODUCT USED FOR UNKNOWN INDICATION
     Dates: start: 20040915, end: 20040915
  2. OMNISCAN [Suspect]
     Dates: start: 20040927, end: 20040927
  3. OMNISCAN [Suspect]
     Dates: start: 20051104, end: 20051104
  4. GADOLINIUM (UNSPECIFIED) [Suspect]
     Indication: PRODUCT USED FOR UNKNOWN INDICATION
     Dates: start: 200611, end: 200611

REACTIONS (1)
  - Nephrogenic systemic fibrosis [Not Recovered/Not Resolved]
